FAERS Safety Report 19908762 (Version 4)
Quarter: 2023Q1

REPORT INFORMATION
  Report Type: Spontaneous
  Country: CA (occurrence: CA)
  Receive Date: 20211002
  Receipt Date: 20230207
  Transmission Date: 20230417
  Serious: Yes (Hospitalization, Other)
  Sender: FDA-Public Use
  Company Number: CA-CELLTRION INC.-2020CA023042

PATIENT

DRUGS (32)
  1. INFLECTRA [Suspect]
     Active Substance: INFLIXIMAB-DYYB
     Indication: Crohn^s disease
     Dosage: 300 MG AT 0, 2, 6WEEKS, THEN EVERY 8 WEEKS
     Route: 042
     Dates: start: 20200302, end: 20220829
  2. INFLECTRA [Suspect]
     Active Substance: INFLIXIMAB-DYYB
     Dosage: 300 MG AT 0, 2, 6WEEKS, THEN EVERY 8 WEEKS
     Route: 042
     Dates: start: 20200413
  3. INFLECTRA [Suspect]
     Active Substance: INFLIXIMAB-DYYB
     Dosage: 300 MG AT 0, 2, 6WEEKS, THEN EVERY 8 WEEKS
     Route: 042
     Dates: start: 20200608
  4. INFLECTRA [Suspect]
     Active Substance: INFLIXIMAB-DYYB
     Dosage: 300 MG AT 0, 2, 6WEEKS, THEN EVERY 8 WEEKS
     Route: 042
     Dates: start: 20200805
  5. INFLECTRA [Suspect]
     Active Substance: INFLIXIMAB-DYYB
     Dosage: 300 MG AT 0, 2, 6WEEKS, THEN EVERY 8 WEEKS
     Route: 042
     Dates: start: 20201005
  6. INFLECTRA [Suspect]
     Active Substance: INFLIXIMAB-DYYB
     Dosage: 300 MG AT 0, 2, 6WEEKS, THEN EVERY 8 WEEKS
     Route: 042
     Dates: start: 20201207
  7. INFLECTRA [Suspect]
     Active Substance: INFLIXIMAB-DYYB
     Dosage: 300 MG AT 0, 2, 6WEEKS, THEN EVERY 8 WEEKS
     Route: 042
     Dates: start: 20210407
  8. INFLECTRA [Suspect]
     Active Substance: INFLIXIMAB-DYYB
     Dosage: 300 MG AT 0, 2, 6WEEKS, THEN EVERY 8 WEEKS
     Route: 042
     Dates: start: 20210602
  9. INFLECTRA [Suspect]
     Active Substance: INFLIXIMAB-DYYB
     Dosage: 300 MG, 0, 2, 6 WEEKS, THEN EVERY 8 WEEKS
     Route: 042
     Dates: start: 20210728
  10. INFLECTRA [Suspect]
     Active Substance: INFLIXIMAB-DYYB
     Dosage: 300 MG, 0, 2, 6 WEEKS, THEN EVERY 8 WEEKS
     Route: 042
     Dates: start: 20210922
  11. INFLECTRA [Suspect]
     Active Substance: INFLIXIMAB-DYYB
     Dosage: 300 MG, 0, 2, 6 WEEKS, THEN EVERY 8 WEEKS
     Route: 042
     Dates: start: 20211117
  12. INFLECTRA [Suspect]
     Active Substance: INFLIXIMAB-DYYB
     Dosage: 300 MG, 0, 2, 6 WEEKS, THEN EVERY 8 WEEKS
     Route: 042
     Dates: start: 20220504
  13. INFLECTRA [Suspect]
     Active Substance: INFLIXIMAB-DYYB
     Dosage: 300 MG, 0, 2, 6 WEEKS, THEN EVERY 8 WEEKS
     Route: 042
     Dates: start: 20220630
  14. INFLECTRA [Suspect]
     Active Substance: INFLIXIMAB-DYYB
     Dosage: 300 MG, 0, 2, 6 WEEKS, THEN EVERY 8 WEEKS
     Route: 042
     Dates: start: 20220630
  15. INFLECTRA [Suspect]
     Active Substance: INFLIXIMAB-DYYB
     Dosage: 300 MG, 0, 2, 6 WEEKS, THEN EVERY 8 WEEKS
     Route: 042
     Dates: start: 20220829
  16. ATASOL 15 [Concomitant]
     Dosage: 1 DF, 2X/DAY (325MG-15 MG-30MG TAB )(325-15-30)
     Route: 048
  17. AVENTYL [Concomitant]
     Active Substance: NORTRIPTYLINE HYDROCHLORIDE
     Dosage: 35 MG HS(AT BEDTIME)
     Route: 048
  18. BETADERM [Concomitant]
     Active Substance: BETAMETHASONE VALERATE
     Dosage: 0.1% 1 APPLICATION(S)
     Route: 065
  19. BETAMETHASONE [Concomitant]
     Active Substance: BETAMETHASONE
     Dosage: 0.1% CREAM 1APPLICATION(S)
     Route: 065
  20. CIPRALEX [Concomitant]
     Active Substance: ESCITALOPRAM OXALATE
     Dosage: 10 MG, 1X/DAY
     Route: 048
  21. COACTIFED [CODEINE PHOSPHATE;PSEUDOEPHEDRINE HYDROCHLORIDE;TRIPROLIDIN [Concomitant]
     Dosage: 5 ML, 3X/DAY ((30-10-2/5),)
     Route: 048
  22. ENTYVIO [Concomitant]
     Active Substance: VEDOLIZUMAB
     Dosage: 300 MG, WEEKLY
     Route: 065
  23. FERROUS FUMARATE [Concomitant]
     Active Substance: FERROUS FUMARATE
     Dosage: 300 MG, 1X/DAY
     Route: 048
  24. IMITREX [Concomitant]
     Active Substance: SUMATRIPTAN SUCCINATE
     Dosage: 100 MG, 1X/DAY
     Route: 048
  25. IMURAN [Concomitant]
     Active Substance: AZATHIOPRINE
     Dosage: 150 MG, 1X/DAY
     Route: 048
  26. MESALAMINE [Concomitant]
     Active Substance: MESALAMINE
     Dosage: 1.2 G, 2X/DAY 2 TABLET(S)
     Route: 048
  27. CLONAZEPAM [Concomitant]
     Active Substance: CLONAZEPAM
     Dosage: 0.25 MG HS
     Route: 048
  28. RANITIDINE HYDROCHLORIDE [Concomitant]
     Active Substance: RANITIDINE HYDROCHLORIDE
     Dosage: 300 MG HS
     Route: 048
  29. RELPAX [Concomitant]
     Active Substance: ELETRIPTAN HYDROBROMIDE
     Dosage: 20 MG, DAILY PRN
     Route: 048
  30. SULFASALAZINE [Concomitant]
     Active Substance: SULFASALAZINE
     Indication: Crohn^s disease
     Dosage: 3 G, 1X/DAY
     Route: 048
  31. PANTOPRAZOLE MAGNESIUM [Concomitant]
     Active Substance: PANTOPRAZOLE MAGNESIUM
     Dosage: 40 MG, DAILY
     Route: 048
  32. VITAMIN D3 [Concomitant]
     Active Substance: CHOLECALCIFEROL
     Dosage: 5000 IU, WEEKLY
     Route: 048

REACTIONS (6)
  - Neoplasm malignant [Not Recovered/Not Resolved]
  - Headache [Unknown]
  - Blood iron decreased [Unknown]
  - Condition aggravated [Recovered/Resolved]
  - Arthralgia [Unknown]
  - Weight increased [Unknown]

NARRATIVE: CASE EVENT DATE: 20201005
